FAERS Safety Report 10243364 (Version 1)
Quarter: 2014Q2

REPORT INFORMATION
  Report Type: Spontaneous
  Country: US (occurrence: None)
  Receive Date: 20140616
  Receipt Date: 20140616
  Transmission Date: 20141212
  Serious: Yes (Other)
  Sender: FDA-Public Use
  Company Number: 2014SUP00002

PATIENT
  Age: 36 Year
  Sex: Female
  Weight: 68 kg

DRUGS (4)
  1. TROKENDI XR [Suspect]
     Indication: MIGRAINE
     Route: 048
     Dates: start: 201308
  2. ALDACTONE [Concomitant]
  3. VITAMIN B12 [Concomitant]
  4. MULTIVITAMIN [Concomitant]

REACTIONS (3)
  - Coeliac disease [None]
  - Off label use [None]
  - Thyroid cancer [None]
